FAERS Safety Report 14775131 (Version 2)
Quarter: 2018Q2

REPORT INFORMATION
  Report Type: Spontaneous
  Country: US (occurrence: US)
  Receive Date: 20180418
  Receipt Date: 20180623
  Transmission Date: 20180711
  Serious: No
  Sender: FDA-Public Use
  Company Number: US-GLENMARK PHARMACEUTICALS-2018GMK030851

PATIENT

DRUGS (4)
  1. NYSTATIN AND TRIAMCINOLONE ACETONIDE OINTMENT USP [Suspect]
     Active Substance: NYSTATIN\TRIAMCINOLONE ACETONIDE
     Indication: FUNGAL SKIN INFECTION
     Dosage: UNK, BID
     Route: 061
     Dates: start: 201712, end: 20171211
  2. ZEASORB [Interacting]
     Active Substance: MICONAZOLE NITRATE
     Indication: FUNGAL SKIN INFECTION
     Dosage: UNK
     Route: 065
  3. NYSTATIN AND TRIAMCINOLONE ACETONIDE OINTMENT USP [Interacting]
     Active Substance: NYSTATIN\TRIAMCINOLONE ACETONIDE
     Indication: CANDIDA INFECTION
  4. ZEASORB [Interacting]
     Active Substance: MICONAZOLE NITRATE
     Indication: CANDIDA INFECTION

REACTIONS (3)
  - Drug effect variable [Unknown]
  - Wrong technique in product usage process [Unknown]
  - Drug effect incomplete [Recovering/Resolving]
